FAERS Safety Report 25285082 (Version 1)
Quarter: 2025Q2

REPORT INFORMATION
  Report Type: Report from Study
  Country: ZA (occurrence: ZA)
  Receive Date: 20250508
  Receipt Date: 20250508
  Transmission Date: 20250717
  Serious: Yes (Hospitalization, Other)
  Sender: ALEXION PHARMACEUTICALS
  Company Number: ZA-AstraZeneca-CH-00864316A

PATIENT
  Age: 89 Year

DRUGS (5)
  1. DAPAGLIFLOZIN [Suspect]
     Active Substance: DAPAGLIFLOZIN
     Indication: Diabetes mellitus
  2. Spiractin [Concomitant]
     Indication: Hypertension
  3. FUROSEMIDE [Concomitant]
     Active Substance: FUROSEMIDE
     Indication: Hypertension
  4. Serdep [Concomitant]
     Indication: Psychiatric disorder prophylaxis
  5. Zopeaze [Concomitant]
     Indication: Sleep disorder

REACTIONS (4)
  - Cardiac failure [Unknown]
  - Pulmonary oedema [Unknown]
  - Dyspnoea [Unknown]
  - Behaviour disorder [Unknown]
